FAERS Safety Report 20254054 (Version 2)
Quarter: 2022Q1

REPORT INFORMATION
  Report Type: Spontaneous
  Country: TW (occurrence: TW)
  Receive Date: 20211230
  Receipt Date: 20220111
  Transmission Date: 20220423
  Serious: Yes (Hospitalization)
  Sender: FDA-Public Use
  Company Number: TW-CHUGAI-2021033368

PATIENT
  Sex: Female
  Weight: 64 kg

DRUGS (9)
  1. ACTEMRA [Suspect]
     Active Substance: TOCILIZUMAB
     Indication: Rheumatoid arthritis
     Dosage: 400 MILLIGRAM, ONCE/MONTH
     Route: 041
     Dates: start: 20121022, end: 20211129
  2. ACTEMRA [Suspect]
     Active Substance: TOCILIZUMAB
     Indication: Rheumatoid arthritis
     Route: 058
  3. BIO-CAL [Concomitant]
     Indication: Osteoporosis
     Dosage: 1 TAB, QD
     Route: 048
  4. CELEBREX [Concomitant]
     Active Substance: CELECOXIB
     Indication: Pain
     Dosage: 200 MILLIGRAM, QD
     Route: 048
  5. FOLIC ACID [Concomitant]
     Active Substance: FOLIC ACID
     Indication: Prophylaxis
     Dosage: 5 MILLIGRAM, QD
     Route: 048
  6. LIPITOR [Concomitant]
     Active Substance: ATORVASTATIN CALCIUM
     Indication: Hyperlipidaemia
     Dosage: 20 MILLIGRAM, QOD
     Route: 048
  7. METHOTREXATE [Concomitant]
     Active Substance: METHOTREXATE
     Dosage: UNK
     Route: 065
  8. PLAQUENIL [Concomitant]
     Active Substance: HYDROXYCHLOROQUINE SULFATE
  9. TEARS NATURALE FORTE [Concomitant]
     Active Substance: DEXTRAN 70\GLYCERIN\HYPROMELLOSES

REACTIONS (2)
  - Cerebrovascular accident [Recovering/Resolving]
  - Hemiplegia [Unknown]

NARRATIVE: CASE EVENT DATE: 20210101
